FAERS Safety Report 14215871 (Version 1)
Quarter: 2017Q4

REPORT INFORMATION
  Report Type: Report from Study
  Country: US (occurrence: US)
  Receive Date: 20171122
  Receipt Date: 20171122
  Transmission Date: 20180321
  Serious: Yes (Other)
  Sender: FDA-Public Use
  Company Number: US-ROCHE-2029702

PATIENT

DRUGS (10)
  1. ALTEPLASE. [Suspect]
     Active Substance: ALTEPLASE
     Dosage: 0.50-MG/KG (UP TO 35 MG) INFUSION OVER 60 MIN
     Route: 042
  2. HIRUDIN [Suspect]
     Active Substance: HIRUDIN
     Route: 042
  3. METOPROLOL TARTRATE. [Concomitant]
     Active Substance: METOPROLOL TARTRATE
     Route: 042
  4. HIRUDIN [Suspect]
     Active Substance: HIRUDIN
     Indication: ACUTE MYOCARDIAL INFARCTION
     Route: 040
  5. ALTEPLASE. [Suspect]
     Active Substance: ALTEPLASE
     Indication: ACUTE MYOCARDIAL INFARCTION
     Dosage: 0.75-MG/KG (UP TO 50 MG) INFUSION OVER 30 MIN
     Route: 040
  6. ASPIRIN. [Suspect]
     Active Substance: ASPIRIN
     Route: 048
  7. METOPROLOL TARTRATE. [Concomitant]
     Active Substance: METOPROLOL TARTRATE
     Route: 048
  8. HEPARIN [Suspect]
     Active Substance: HEPARIN SODIUM
     Indication: ACUTE MYOCARDIAL INFARCTION
     Dosage: 5 .000-IU
     Route: 040
  9. HEPARIN [Suspect]
     Active Substance: HEPARIN SODIUM
     Dosage: .000-IU7H
     Route: 042
  10. ASPIRIN. [Suspect]
     Active Substance: ASPIRIN
     Indication: ACUTE MYOCARDIAL INFARCTION
     Dosage: CHEWED IMMEDIATELY ON ENROLLMENT, FF PATIENTS WERE NOT ALREADY TAKING ASPIRIN
     Route: 048

REACTIONS (1)
  - Haemorrhage intracranial [Unknown]
